FAERS Safety Report 20783962 (Version 1)
Quarter: 2022Q2

REPORT INFORMATION
  Report Type: Spontaneous
  Country: US (occurrence: None)
  Receive Date: 20220504
  Receipt Date: 20220504
  Transmission Date: 20220721
  Serious: No
  Sender: FDA-Public Use
  Company Number: 2022A161950

PATIENT
  Sex: Female

DRUGS (1)
  1. CRESTOR [Suspect]
     Active Substance: ROSUVASTATIN CALCIUM
     Indication: Plague
     Dosage: 40.0MG ONCE/SINGLE ADMINISTRATION
     Route: 048

REACTIONS (3)
  - Dizziness [Unknown]
  - Fatigue [Unknown]
  - Off label use [Unknown]
